FAERS Safety Report 8488923-8 (Version None)
Quarter: 2012Q3

REPORT INFORMATION
  Report Type: 
  Country: None (occurrence: None)
  Receive Date: 20120705
  Receipt Date: 20120625
  Transmission Date: 20120928
  Serious: Yes (Other)
  Sender: FDA-Public Use
  Company Number: CL-ROCHE-1083830

PATIENT
  Age: 62 Year
  Sex: Female
  Weight: 70 kg

DRUGS (4)
  1. ONDANSETRON [Concomitant]
     Indication: PREMEDICATION
     Route: 042
     Dates: start: 20120622, end: 20120622
  2. RANITIDINE [Concomitant]
     Indication: PREMEDICATION
     Route: 042
     Dates: start: 20120622, end: 20120622
  3. XELODA [Suspect]
     Indication: COLON CANCER
     Dosage: 1500 MG IN MORNING AND 1000 MG IN EVENING
     Route: 048
     Dates: start: 20120622
  4. OXALIPLATIN [Suspect]
     Indication: COLON CANCER

REACTIONS (3)
  - UNEVALUABLE EVENT [None]
  - CHOKING SENSATION [None]
  - COUGH [None]
